FAERS Safety Report 8903175 (Version 5)
Quarter: 2013Q2

REPORT INFORMATION
  Report Type: Spontaneous
  Country: US (occurrence: US)
  Receive Date: 20121113
  Receipt Date: 20130508
  Transmission Date: 20140414
  Serious: Yes (Hospitalization, Other)
  Sender: FDA-Public Use
  Company Number: US-009507513-1211USA004957

PATIENT
  Sex: Female
  Weight: 57.6 kg

DRUGS (6)
  1. FOSAMAX [Suspect]
     Indication: OSTEOPOROSIS
     Dosage: 10 MG, QD
     Route: 048
     Dates: start: 20001018, end: 200808
  2. FOSAMAX [Suspect]
     Dosage: 70 MG, QW
     Route: 048
     Dates: end: 200808
  3. ALENDRONATE SODIUM [Suspect]
     Dosage: UNK
     Dates: start: 2000, end: 2008
  4. VITAMINS (UNSPECIFIED) [Concomitant]
     Dosage: 1 DF, QD
  5. SYNTHROID [Concomitant]
     Indication: HYPOTHYROIDISM
     Dosage: UNK
     Dates: start: 20030106
  6. PREMARIN [Concomitant]
     Indication: MENOPAUSE
     Dosage: UNK
     Dates: start: 20031119

REACTIONS (15)
  - Femur fracture [Unknown]
  - Femur fracture [Unknown]
  - Intramedullary rod insertion [Unknown]
  - Intramedullary rod insertion [Unknown]
  - Device failure [Unknown]
  - Medical device removal [Unknown]
  - Foot operation [Unknown]
  - Bone graft [Unknown]
  - Graft complication [Unknown]
  - Low turnover osteopathy [Unknown]
  - Fall [Unknown]
  - Osteopenia [Unknown]
  - Periodontal operation [Unknown]
  - Osteoarthritis [Unknown]
  - Foot operation [Unknown]
